FAERS Safety Report 9792077 (Version 2)
Quarter: 2014Q1

REPORT INFORMATION
  Report Type: Spontaneous
  Country: JP (occurrence: JP)
  Receive Date: 20140102
  Receipt Date: 20140204
  Transmission Date: 20141002
  Serious: Yes (Death)
  Sender: FDA-Public Use
  Company Number: JP-PFIZER INC-2013371863

PATIENT
  Age: 80 Year
  Sex: Female

DRUGS (1)
  1. ARGATROBAN [Suspect]
     Indication: DIALYSIS
     Dosage: UNK
     Route: 051

REACTIONS (1)
  - Cardiac failure [Fatal]
